FAERS Safety Report 11441895 (Version 3)
Quarter: 2015Q4

REPORT INFORMATION
  Report Type: Report from Study
  Country: US (occurrence: US)
  Receive Date: 20150901
  Receipt Date: 20151029
  Transmission Date: 20160304
  Serious: Yes (Other)
  Sender: FDA-Public Use
  Company Number: PHEH2015US014569

PATIENT
  Sex: Female
  Weight: 73.47 kg

DRUGS (1)
  1. GILENYA [Suspect]
     Active Substance: FINGOLIMOD HYDROCHLORIDE
     Indication: MULTIPLE SCLEROSIS
     Dosage: 0.5 MG, QD
     Route: 048
     Dates: start: 20150116

REACTIONS (7)
  - Drug ineffective [Unknown]
  - Vertigo [Not Recovered/Not Resolved]
  - Multiple sclerosis [Unknown]
  - Fatigue [Unknown]
  - Dizziness [Unknown]
  - Feeling abnormal [Unknown]
  - Hypoaesthesia [Not Recovered/Not Resolved]
